FAERS Safety Report 12531120 (Version 1)
Quarter: 2016Q3

REPORT INFORMATION
  Report Type: Spontaneous
  Country: US (occurrence: None)
  Receive Date: 20160705
  Receipt Date: 20160705
  Transmission Date: 20161109
  Serious: Yes (Hospitalization)
  Sender: FDA-Public Use
  Company Number: None

PATIENT
  Sex: Female

DRUGS (3)
  1. LIMBREL [Concomitant]
     Active Substance: FLAVOCOXID
  2. KEFLEX [Concomitant]
     Active Substance: CEPHALEXIN
  3. ENBREL [Suspect]
     Active Substance: ETANERCEPT
     Indication: RHEUMATOID ARTHRITIS
     Route: 058
     Dates: start: 20120522

REACTIONS (3)
  - Osteomyelitis [None]
  - Bacterial sepsis [None]
  - Bacterial infection [None]

NARRATIVE: CASE EVENT DATE: 2016
